FAERS Safety Report 11925662 (Version 3)
Quarter: 2016Q2

REPORT INFORMATION
  Report Type: Report from Study
  Country: PL (occurrence: PL)
  Receive Date: 20160118
  Receipt Date: 20160503
  Transmission Date: 20160815
  Serious: Yes (Other)
  Sender: FDA-Public Use
  Company Number: PHHY2016PL002598

PATIENT
  Age: 37 Year
  Sex: Female

DRUGS (2)
  1. NILOTINIB [Suspect]
     Active Substance: NILOTINIB
     Indication: CHRONIC MYELOID LEUKAEMIA
     Route: 048
     Dates: start: 201412
  2. NILOTINIB [Suspect]
     Active Substance: NILOTINIB
     Dosage: 200 MG, BID
     Route: 048
     Dates: start: 201510

REACTIONS (8)
  - Skin lesion [Not Recovered/Not Resolved]
  - Erythema [Unknown]
  - Abdominal pain [Recovered/Resolved]
  - Haematocrit increased [Unknown]
  - Flatulence [Recovered/Resolved]
  - Neutrophil percentage increased [Unknown]
  - Onychomycosis [Recovered/Resolved]
  - Haemoglobin increased [Unknown]

NARRATIVE: CASE EVENT DATE: 201509
